FAERS Safety Report 12659577 (Version 2)
Quarter: 2016Q3

REPORT INFORMATION
  Report Type: Spontaneous
  Country: FR (occurrence: FR)
  Receive Date: 20160817
  Receipt Date: 20160818
  Transmission Date: 20161109
  Serious: Yes (Life-Threatening)
  Sender: FDA-Public Use
  Company Number: FR-PFIZER INC-2016384431

PATIENT
  Age: 45 Year
  Sex: Male

DRUGS (7)
  1. PROPOFOL. [Suspect]
     Active Substance: PROPOFOL
     Indication: INDUCTION OF ANAESTHESIA
     Dosage: UNK
     Route: 042
     Dates: start: 20151024, end: 20151024
  2. ATRACURIUM BESILATE [Suspect]
     Active Substance: ATRACURIUM BESYLATE
     Indication: INDUCTION OF ANAESTHESIA
     Dosage: UNK
     Route: 042
     Dates: start: 20151024, end: 20151024
  3. KETAMINE [Suspect]
     Active Substance: KETAMINE
     Indication: INDUCTION OF ANAESTHESIA
     Dosage: UNK
     Route: 042
     Dates: start: 20151024, end: 20151024
  4. LYRICA [Concomitant]
     Active Substance: PREGABALIN
  5. BIPROFENID [Concomitant]
     Active Substance: KETOPROFEN
     Dosage: 50 MG, UNK
  6. LEVOTHYROX [Concomitant]
     Active Substance: LEVOTHYROXINE
     Dosage: ALTERNATELY INTAKES OF 175 ?G AND 150 ?G
  7. INEXIUM /01479302/ [Concomitant]
     Active Substance: ESOMEPRAZOLE MAGNESIUM

REACTIONS (6)
  - Respiratory failure [Recovered/Resolved]
  - Generalised erythema [Recovered/Resolved]
  - Hypotension [Recovered/Resolved]
  - Anaphylactic shock [Recovered/Resolved]
  - Bradycardia [Recovered/Resolved]
  - Hypoxia [Recovered/Resolved]

NARRATIVE: CASE EVENT DATE: 20151024
